FAERS Safety Report 6322223-7 (Version None)
Quarter: 2009Q3

REPORT INFORMATION
  Report Type: 
  Country: None (occurrence: None)
  Receive Date: 20090824
  Receipt Date: 20090812
  Transmission Date: 20100115
  Serious: Yes (Other)
  Sender: FDA-Public Use
  Company Number: GB-PFIZER INC-2009253397

PATIENT
  Age: 24 Year

DRUGS (1)
  1. DOXYCYCLINE HYCLATE [Suspect]

REACTIONS (3)
  - HYPOAESTHESIA [None]
  - PARAESTHESIA [None]
  - PHOTOSENSITIVITY REACTION [None]
